FAERS Safety Report 12633145 (Version 1)
Quarter: 2016Q3

REPORT INFORMATION
  Report Type: Spontaneous
  Country: US (occurrence: None)
  Receive Date: 20160808
  Receipt Date: 20160808
  Transmission Date: 20161109
  Serious: Yes (Other)
  Sender: FDA-Public Use
  Company Number: None

PATIENT
  Age: 77 Year
  Sex: Female

DRUGS (1)
  1. HYDRALAZINE 20MG/ML [Suspect]
     Active Substance: HYDRALAZINE HYDROCHLORIDE
     Indication: BLOOD PRESSURE INCREASED
     Dosage: 10MG Q4HRS PRN IVP
     Route: 042
     Dates: start: 20160721

REACTIONS (2)
  - Pharyngeal oedema [None]
  - Flushing [None]

NARRATIVE: CASE EVENT DATE: 20160721
